FAERS Safety Report 10310520 (Version 1)
Quarter: 2014Q3

REPORT INFORMATION
  Report Type: Spontaneous
  Country: US (occurrence: None)
  Receive Date: 20140716
  Receipt Date: 20140716
  Transmission Date: 20150326
  Serious: Yes (Hospitalization)
  Sender: FDA-Public Use
  Company Number: None

PATIENT
  Age: 4 Year
  Sex: Male
  Weight: 18.9 kg

DRUGS (2)
  1. CISPLATIN. [Suspect]
     Active Substance: CISPLATIN
     Dosage: TOTAL DOSE ADMINISTERED 144 MG
  2. ETOPOSIDE (VP-16) [Suspect]
     Active Substance: ETOPOSIDE
     Dosage: TOTAL DOSE ADMINISTERED 435 MG

REACTIONS (9)
  - Septic shock [None]
  - Pseudomonas test positive [None]
  - Pyrexia [None]
  - Oedema [None]
  - Bacillus test positive [None]
  - Scrotal oedema [None]
  - Hydrocele [None]
  - Soft tissue disorder [None]
  - Ultrasound scan abnormal [None]

NARRATIVE: CASE EVENT DATE: 20140703
